FAERS Safety Report 6352981-7 (Version None)
Quarter: 2009Q3

REPORT INFORMATION
  Report Type: 
  Country: None (occurrence: None)
  Receive Date: 20090912
  Receipt Date: 20090622
  Transmission Date: 20100115
  Serious: No
  Sender: FDA-Public Use
  Company Number: US-ABBOTT-08P-163-0451930-00

PATIENT
  Sex: Male

DRUGS (13)
  1. HUMIRA [Suspect]
     Indication: PSORIASIS
     Route: 058
     Dates: start: 20070731
  2. LOTRELL [Concomitant]
     Indication: HYPERTENSION
     Route: 048
  3. TELMISARTAN [Concomitant]
     Indication: HYPERTENSION
     Dosage: DAILY DOSE: 80/25 MILLIGRAMS
     Route: 048
  4. AMITRIPTYLINE [Concomitant]
     Indication: PRURITUS
     Route: 048
  5. AMITRIPTYLINE [Concomitant]
     Indication: INSOMNIA
  6. GABAPENTIN [Concomitant]
     Indication: NEUROPATHY PERIPHERAL
     Route: 048
  7. POTASSIUM CHLORIDE [Concomitant]
     Indication: ELECTROLYTE SUBSTITUTION THERAPY
     Route: 048
  8. FUROSEMIDE [Concomitant]
     Indication: HYPERTENSION
     Route: 048
  9. FUROSEMIDE [Concomitant]
     Indication: FLUID RETENTION
  10. CELECOXIB [Concomitant]
     Indication: ARTHRITIS
     Route: 048
  11. CITALOPRAM HYDROBROMIDE [Concomitant]
     Indication: DEPRESSION
     Route: 048
  12. ACITRETIN [Concomitant]
     Indication: PSORIASIS
     Route: 048
     Dates: start: 20060101
  13. INSULIN [Concomitant]
     Indication: DIABETES MELLITUS
     Route: 058
     Dates: start: 20080401

REACTIONS (2)
  - INCORRECT DOSE ADMINISTERED [None]
  - INJECTION SITE IRRITATION [None]
